FAERS Safety Report 23051958 (Version 3)
Quarter: 2023Q4

REPORT INFORMATION
  Report Type: Spontaneous
  Country: DE (occurrence: DE)
  Receive Date: 20231010
  Receipt Date: 20231116
  Transmission Date: 20240110
  Serious: Yes (Other)
  Sender: FDA-Public Use
  Company Number: DE-BRISTOL-MYERS SQUIBB COMPANY-2023-143557

PATIENT
  Age: 48 Year
  Sex: Female

DRUGS (1)
  1. ORENCIA [Suspect]
     Active Substance: ABATACEPT
     Indication: Product used for unknown indication
     Dosage: DOSE : 125 MG;     FREQ : UNAV.
     Route: 058
     Dates: start: 20221229

REACTIONS (3)
  - Device safety feature issue [Unknown]
  - Device delivery system issue [Unknown]
  - Device operational issue [Unknown]

NARRATIVE: CASE EVENT DATE: 20231001
